FAERS Safety Report 13229534 (Version 1)
Quarter: 2017Q1

REPORT INFORMATION
  Report Type: Report from Study
  Country: US (occurrence: US)
  Receive Date: 20170214
  Receipt Date: 20170214
  Transmission Date: 20170428
  Serious: Yes (Hospitalization, Other)
  Sender: FDA-Public Use
  Company Number: US-ROCHE-1887797

PATIENT
  Age: 88 Year
  Sex: Male
  Weight: 83.99 kg

DRUGS (2)
  1. ERIVEDGE [Suspect]
     Active Substance: VISMODEGIB
     Indication: BASAL CELL CARCINOMA
     Route: 048
     Dates: start: 201612
  2. ERIVEDGE [Suspect]
     Active Substance: VISMODEGIB
     Indication: BASOSQUAMOUS CARCINOMA
     Route: 048
     Dates: start: 201208

REACTIONS (9)
  - Dysgeusia [Not Recovered/Not Resolved]
  - Fatigue [Not Recovered/Not Resolved]
  - Cellulitis [Recovering/Resolving]
  - Asthenia [Unknown]
  - Radiation injury [Unknown]
  - Basal cell carcinoma [Not Recovered/Not Resolved]
  - Dysstasia [Unknown]
  - Ill-defined disorder [Unknown]
  - Lymphoedema [Not Recovered/Not Resolved]

NARRATIVE: CASE EVENT DATE: 2017
